FAERS Safety Report 7604206-X (Version None)
Quarter: 2011Q3

REPORT INFORMATION
  Report Type: 
  Country: None (occurrence: None)
  Receive Date: 20110712
  Receipt Date: 20110706
  Transmission Date: 20111222
  Serious: Yes (Other)
  Sender: FDA-Public Use
  Company Number: GB-MERCK-1012USA01815

PATIENT
  Age: 53 Year
  Sex: Female

DRUGS (5)
  1. ESTRADIOL [Suspect]
     Route: 065
  2. DECADRON [Suspect]
     Route: 048
  3. BUPIVACAINE HCL [Suspect]
     Indication: SPINAL ANAESTHESIA
     Route: 065
  4. BENDROFLUAZIDE TABLETS [Concomitant]
     Route: 065
  5. DIACETYLMORPHINE [Suspect]
     Indication: SPINAL ANAESTHESIA
     Route: 065

REACTIONS (1)
  - MYOCLONUS [None]
